FAERS Safety Report 5957170-3 (Version None)
Quarter: 2008Q4

REPORT INFORMATION
  Report Type: 
  Country: None (occurrence: None)
  Receive Date: 20081118
  Receipt Date: 20081106
  Transmission Date: 20090506
  Serious: Yes (Hospitalization)
  Sender: FDA-Public Use
  Company Number: US-ROCHE-580555

PATIENT
  Sex: Female
  Weight: 84.8 kg

DRUGS (11)
  1. TICLID [Suspect]
     Indication: DRUG USE FOR UNKNOWN INDICATION
     Route: 065
     Dates: start: 20080511
  2. LIPITOR [Suspect]
     Route: 048
     Dates: start: 20080304, end: 20080413
  3. PLAVIX [Suspect]
     Indication: HYPERTENSION
     Dosage: OTHER INDICATION REPORTED AS: CARDIAC CATHETERISATION
     Route: 048
     Dates: start: 20080304, end: 20080416
  4. PLAVIX [Suspect]
     Route: 048
  5. ACETYLSALICYLIC ACID SRT [Suspect]
     Route: 065
     Dates: start: 20001116
  6. ACETYLSALICYLIC ACID SRT [Suspect]
     Dosage: LOW DOSE ASPIRIN
     Route: 065
     Dates: start: 20080303
  7. ACETYLSALICYLIC ACID SRT [Suspect]
     Route: 065
  8. METOPROLOL TARTRATE [Concomitant]
     Dates: start: 20001106
  9. ALTACE [Concomitant]
     Route: 048
     Dates: start: 20001106
  10. ALTACE [Concomitant]
     Dosage: DOSE INCREASED
     Route: 048
     Dates: start: 20080303
  11. ALTACE [Concomitant]
     Route: 048

REACTIONS (5)
  - AGEUSIA [None]
  - DEHYDRATION [None]
  - DIARRHOEA [None]
  - VOMITING [None]
  - WEIGHT DECREASED [None]
